FAERS Safety Report 24365798 (Version 1)
Quarter: 2024Q3

REPORT INFORMATION
  Report Type: Spontaneous
  Country: AU (occurrence: AU)
  Receive Date: 20240926
  Receipt Date: 20240926
  Transmission Date: 20241016
  Serious: Yes (Hospitalization)
  Sender: MACLEODS
  Company Number: AU-MLMSERVICE-20240912-PI187999-00130-2

PATIENT

DRUGS (24)
  1. EMTRICITABINE\TENOFOVIR [Suspect]
     Active Substance: EMTRICITABINE\TENOFOVIR
     Indication: Prophylaxis against HIV infection
     Dosage: IN THE MORNING
     Route: 065
     Dates: start: 2023, end: 2023
  2. TELMISARTAN [Suspect]
     Active Substance: TELMISARTAN
     Indication: Hypertension
     Dosage: LONG TERM/ IN THE MORNING
     Route: 048
     Dates: start: 2018, end: 2023
  3. BENSERAZIDE\LEVODOPA [Suspect]
     Active Substance: BENSERAZIDE\LEVODOPA
     Indication: Parkinsonism
     Dosage: LEVODOPA+BENSERAZIDE 100+25 MG ORALLY 3 TIMES DAILY (DOSE REDUCED)
     Route: 048
     Dates: start: 2020, end: 2023
  4. VORTIOXETINE [Concomitant]
     Active Substance: VORTIOXETINE
     Indication: Bipolar disorder
     Dosage: 30 MG IN THE MORNING
     Route: 048
     Dates: start: 2021
  5. TIOTROPIUM [Concomitant]
     Active Substance: TIOTROPIUM
     Indication: Chronic obstructive pulmonary disease
     Dosage: IN THE MORNING
     Dates: start: 2021
  6. QUETIAPINE [Concomitant]
     Active Substance: QUETIAPINE
     Indication: Bipolar disorder
     Dosage: MODIFIED RELEASE/LONG TERM AT NIGHT
     Route: 048
     Dates: start: 2020
  7. METOCLOPRAMIDE [Concomitant]
     Active Substance: METOCLOPRAMIDE
     Dosage: IN THE MORNING
     Route: 048
     Dates: start: 2022, end: 2023
  8. DIAZEPAM [Concomitant]
     Active Substance: DIAZEPAM
     Dosage: LONG TERM/ AT NIGHT
     Route: 048
     Dates: start: 2018
  9. LINAGLIPTIN, METFORMIN [Concomitant]
     Dosage: LINAGLIPTIN+METFORMIN 2.5 MG+1 G ORALLY TWICE DAILY (12 HOUR)
     Route: 048
     Dates: start: 2018
  10. DAPAGLIFLOZIN [Concomitant]
     Active Substance: DAPAGLIFLOZIN
     Dosage: 10 MG IN THE MORNING
     Route: 048
     Dates: start: 2018, end: 2023
  11. LACTULOSE [Concomitant]
     Active Substance: LACTULOSE
     Indication: Constipation
     Dosage: AS REQUIRED
     Route: 048
     Dates: start: 2022, end: 2023
  12. BUDESONIDE\FORMOTEROL [Concomitant]
     Active Substance: BUDESONIDE\FORMOTEROL
     Indication: Chronic obstructive pulmonary disease
     Dosage: INHALED TWICE DAILY (12 HOUR)
  13. LEVOTHYROXINE [Concomitant]
     Active Substance: LEVOTHYROXINE\LEVOTHYROXINE SODIUM
     Dosage: MONDAY TO FRIDAY
     Route: 065
     Dates: start: 2018
  14. LEVOTHYROXINE [Concomitant]
     Active Substance: LEVOTHYROXINE\LEVOTHYROXINE SODIUM
     Dosage: SATURDAY AND SUNDAY
     Route: 065
     Dates: start: 2018
  15. ACETAMINOPHEN [Concomitant]
     Active Substance: ACETAMINOPHEN
     Dosage: AS NECESSARY
     Route: 048
     Dates: start: 2018
  16. INSULIN GLARGINE [Concomitant]
     Active Substance: INSULIN GLARGINE
     Dosage: 30 UNITS/LONG TERM  IN THE EVENING
     Route: 058
     Dates: start: 2018, end: 2023
  17. FENOFIBRATE [Concomitant]
     Active Substance: FENOFIBRATE
     Indication: Hypercholesterolaemia
     Dosage: 145 MG IN THE MORNING/LONG TERM
     Route: 048
     Dates: start: 2018
  18. ENTECAVIR [Concomitant]
     Active Substance: ENTECAVIR
     Indication: Chronic hepatitis B
     Dosage: IN THE EVENING
     Route: 048
     Dates: start: 2022
  19. ATORVASTATIN [Concomitant]
     Active Substance: ATORVASTATIN
     Indication: Hypercholesterolaemia
     Dosage: AT NIGHT/LONG TERM
     Route: 048
     Dates: start: 2018
  20. ALBUTEROL [Concomitant]
     Active Substance: ALBUTEROL
     Indication: Chronic obstructive pulmonary disease
     Dosage: 200 MICROGRAMS INHALED UP TO 4 TIMES DAILY AS REQUIRED
     Dates: start: 2018
  21. TEMAZEPAM [Concomitant]
     Active Substance: TEMAZEPAM
     Indication: Insomnia
     Dosage: 10 MG AT NIGHT
     Route: 065
     Dates: start: 2022, end: 2023
  22. TEMAZEPAM [Concomitant]
     Active Substance: TEMAZEPAM
     Dosage: 10 MG AS REQUIRED
     Route: 065
     Dates: start: 2022, end: 2023
  23. ONDANSETRON [Concomitant]
     Active Substance: ONDANSETRON
     Dosage: 8 HOUR
     Route: 048
  24. PROCHLORPERAZINE [Concomitant]
     Active Substance: PROCHLORPERAZINE
     Route: 048
     Dates: start: 2023, end: 2023

REACTIONS (4)
  - Dehydration [Unknown]
  - Nausea [Recovering/Resolving]
  - Starvation [Unknown]
  - Acute kidney injury [Recovered/Resolved]

NARRATIVE: CASE EVENT DATE: 20230101
